FAERS Safety Report 5344193-0 (Version None)
Quarter: 2007Q2

REPORT INFORMATION
  Report Type: 
  Country: None (occurrence: None)
  Receive Date: 20070604
  Receipt Date: 20070524
  Transmission Date: 20071010
  Serious: Yes (Other)
  Sender: FDA-Public Use
  Company Number: JP-ROCHE-490635

PATIENT
  Age: 49 Year
  Sex: Female
  Weight: 47 kg

DRUGS (7)
  1. TAMIFLU [Suspect]
     Indication: INFLUENZA
     Route: 048
     Dates: start: 20070326, end: 20070327
  2. MYSLEE [Concomitant]
     Route: 048
     Dates: start: 20030723
  3. LOXONIN [Concomitant]
     Route: 048
     Dates: start: 20070326, end: 20070327
  4. PL [Concomitant]
     Route: 048
     Dates: start: 20070326, end: 20070327
  5. LOCHOL [Concomitant]
     Route: 048
  6. LAXOBERON [Concomitant]
     Route: 048
  7. SELBEX [Concomitant]
     Route: 048

REACTIONS (1)
  - ABNORMAL BEHAVIOUR [None]
